FAERS Safety Report 5746538-6 (Version None)
Quarter: 2008Q2

REPORT INFORMATION
  Report Type: 
  Country: None (occurrence: None)
  Receive Date: 20080522
  Receipt Date: 20071120
  Transmission Date: 20081010
  Serious: Yes (Other)
  Sender: FDA-Public Use
  Company Number: US-BRISTOL-MYERS SQUIBB COMPANY-13996780

PATIENT
  Age: 55 Year
  Sex: Male

DRUGS (6)
  1. CYCLOPHOSPHAMIDE [Suspect]
  2. DOXORUBICIN HCL [Suspect]
  3. VINCRISTINE SULFATE [Suspect]
  4. PREDNISONE TAB [Suspect]
  5. RITUXAN [Suspect]
  6. CLOZAPINE [Suspect]
     Dosage: FORMULATION = TABLET
     Route: 048

REACTIONS (1)
  - NEUTROPENIA [None]
